FAERS Safety Report 7801444-8 (Version None)
Quarter: 2011Q4

REPORT INFORMATION
  Report Type: 
  Country: None (occurrence: None)
  Receive Date: 20111006
  Receipt Date: 20111006
  Transmission Date: 20120403
  Serious: Yes (Hospitalization)
  Sender: FDA-Public Use
  Company Number: None

PATIENT
  Age: 75 Year
  Sex: Female
  Weight: 100 kg

DRUGS (9)
  1. ASPIRIN [Suspect]
     Indication: CORONARY ARTERY DISEASE
     Dosage: 81 MG DAILY PO CHRONIC
     Route: 048
  2. RAMIPRIL [Concomitant]
  3. PLAVIX [Suspect]
     Indication: ATRIAL FIBRILLATION
     Dosage: 75 MG DAILY PO CHRONIC
     Route: 048
  4. PLAVIX [Suspect]
     Indication: CORONARY ARTERY DISEASE
     Dosage: 75 MG DAILY PO CHRONIC
     Route: 048
  5. SPIRONOLACTONE [Concomitant]
  6. SIMVASTATIN [Concomitant]
  7. FLUOXETINE [Concomitant]
  8. CARVEDILOL [Concomitant]
  9. LEVOTHYROXINE SODIUM [Concomitant]

REACTIONS (4)
  - FALL [None]
  - WOUND [None]
  - JOINT DISLOCATION [None]
  - HAEMATOMA [None]
